FAERS Safety Report 9829560 (Version 1)
Quarter: 2014Q1

REPORT INFORMATION
  Report Type: Spontaneous
  Country: US (occurrence: US)
  Receive Date: 20140120
  Receipt Date: 20140120
  Transmission Date: 20141002
  Serious: No
  Sender: FDA-Public Use
  Company Number: US-BIOGENIDEC-2013BI120902

PATIENT
  Age: 30 Year
  Sex: Female

DRUGS (7)
  1. LAMICTAL [Concomitant]
  2. MELENZ(NOS) [Concomitant]
  3. VESICARE [Concomitant]
  4. TECFIDERA [Suspect]
     Indication: MULTIPLE SCLEROSIS
     Route: 048
     Dates: start: 20130627
  5. PROZAC [Concomitant]
  6. SKELAXIN [Concomitant]
  7. KLONOPIN [Concomitant]

REACTIONS (1)
  - Urinary tract infection [Not Recovered/Not Resolved]
